FAERS Safety Report 9671347 (Version 1)
Quarter: 2013Q4

REPORT INFORMATION
  Report Type: Spontaneous
  Country: US (occurrence: US)
  Receive Date: 20131106
  Receipt Date: 20131106
  Transmission Date: 20140711
  Serious: No
  Sender: FDA-Public Use
  Company Number: US-ABBVIE-13P-163-1063641-00

PATIENT
  Sex: Male
  Weight: 130.3 kg

DRUGS (7)
  1. TRICOR [Suspect]
     Indication: BLOOD CHOLESTEROL INCREASED
  2. METFORMIN [Concomitant]
     Indication: DIABETES MELLITUS
  3. GLIPIZIDE [Concomitant]
     Indication: DIABETES MELLITUS
  4. FOSAMAX [Concomitant]
     Indication: BONE DISORDER
  5. BENAZEPRIL [Concomitant]
     Indication: HYPERTENSION
     Dosage: 20 MG DAILY
  6. ASPIRIN [Concomitant]
     Indication: PRODUCT USED FOR UNKNOWN INDICATION
  7. UNKNOWN MEDICATION [Concomitant]
     Indication: BACK PAIN

REACTIONS (1)
  - Muscle spasms [Not Recovered/Not Resolved]
